FAERS Safety Report 6329188-2 (Version None)
Quarter: 2009Q3

REPORT INFORMATION
  Report Type: 
  Country: None (occurrence: None)
  Receive Date: 20090826
  Receipt Date: 20090813
  Transmission Date: 20100115
  Serious: Yes (Hospitalization)
  Sender: FDA-Public Use
  Company Number: US-ELI_LILLY_AND_COMPANY-US200908003734

PATIENT
  Age: 82 Year
  Sex: Female

DRUGS (18)
  1. CYMBALTA [Suspect]
     Dosage: 1 D/F, UNK
     Route: 048
  2. CYMBALTA [Suspect]
     Dosage: 90 MG, UNK
     Route: 048
  3. CYMBALTA [Suspect]
     Dosage: 30 MG, UNK
     Dates: start: 20090101
  4. OMEPRAZOLE [Concomitant]
     Dosage: 20 MG, DAILY (1/D)
  5. LEVAQUIN [Concomitant]
     Dosage: 250 MG, DAILY (1/D)
     Dates: start: 20090728, end: 20090804
  6. BONIVA [Concomitant]
     Dosage: 15 UG, UNK
  7. PRIMIDONE [Concomitant]
     Dosage: 75 MG, DAILY (1/D)
  8. XANAX [Concomitant]
     Dosage: 1.5 MG, 3/D
  9. REMERON [Concomitant]
     Dosage: 4 MG, EACH EVENING
  10. NORVASC [Concomitant]
     Dosage: 2.5 MG, DAILY (1/D)
  11. MACROBID [Concomitant]
     Dosage: 100 MG, DAILY (1/D)
  12. LANTUS [Concomitant]
     Dosage: 32 U, EACH EVENING
  13. JANUVIA [Concomitant]
     Dosage: 50 MG, DAILY (1/D)
  14. LASIX [Concomitant]
     Dosage: 20 MG, 2/D
  15. LISINOPRIL [Concomitant]
     Dosage: 20 MG, DAILY (1/D)
  16. TYLENOL                                 /SCH/ [Concomitant]
     Dosage: 500 MG, EVERY 6 HRS
  17. SYNTHROID [Concomitant]
     Dosage: 75 UG, DAILY (1/D)
  18. COREG [Concomitant]
     Dosage: 6.25 MG, 2/D

REACTIONS (3)
  - ABNORMAL BEHAVIOUR [None]
  - HAEMOGLOBIN DECREASED [None]
  - INAPPROPRIATE ANTIDIURETIC HORMONE SECRETION [None]
